FAERS Safety Report 6002584-9 (Version None)
Quarter: 2008Q4

REPORT INFORMATION
  Report Type: 
  Country: None (occurrence: None)
  Receive Date: 20081215
  Receipt Date: 20071129
  Transmission Date: 20090506
  Serious: No
  Sender: FDA-Public Use
  Company Number: US-AMGEN-KDL253279

PATIENT
  Sex: Female

DRUGS (1)
  1. ENBREL [Suspect]
     Indication: RHEUMATOID ARTHRITIS
     Route: 058
     Dates: start: 20050901

REACTIONS (5)
  - JOINT RANGE OF MOTION DECREASED [None]
  - RESPIRATORY TRACT CONGESTION [None]
  - RHEUMATOID ARTHRITIS [None]
  - SINUSITIS [None]
  - STRESS [None]
